FAERS Safety Report 6305651-5 (Version None)
Quarter: 2009Q3

REPORT INFORMATION
  Report Type: 
  Country: None (occurrence: None)
  Receive Date: 20090807
  Receipt Date: 20090729
  Transmission Date: 20100115
  Serious: Yes (Hospitalization)
  Sender: FDA-Public Use
  Company Number: ADE2009-0753

PATIENT
  Age: 45 Year
  Sex: Female

DRUGS (1)
  1. HYDROCHLOROTHIAZIDE [Suspect]
     Dosage: 25MG, DAILY,

REACTIONS (10)
  - BLOOD POTASSIUM DECREASED [None]
  - ENCEPHALOPATHY [None]
  - GLOMERULAR FILTRATION RATE DECREASED [None]
  - HYPONATRAEMIA [None]
  - MUSCULAR WEAKNESS [None]
  - RENAL IMPAIRMENT [None]
  - RESTLESSNESS [None]
  - RHABDOMYOLYSIS [None]
  - URINE OSMOLARITY DECREASED [None]
  - VISION BLURRED [None]
